FAERS Safety Report 4942943-6 (Version None)
Quarter: 2006Q1

REPORT INFORMATION
  Report Type: 
  Country: None (occurrence: None)
  Receive Date: 20060309
  Receipt Date: 20060221
  Transmission Date: 20060701
  Serious: Yes (Hospitalization)
  Sender: FDA-Public Use
  Company Number: 2006-BP-02126RO

PATIENT
  Age: 30 Year
  Sex: Male

DRUGS (1)
  1. METOCLOPRAMIDE [Suspect]
     Indication: VOMITING
     Dosage: 10 MG X 1 DOSE , IM
     Route: 030

REACTIONS (7)
  - ABDOMINAL DISCOMFORT [None]
  - EJECTION FRACTION DECREASED [None]
  - HYPERTENSION [None]
  - PARAGANGLION NEOPLASM [None]
  - PHAEOCHROMOCYTOMA [None]
  - RESUSCITATION [None]
  - SHOCK [None]
